FAERS Safety Report 25495470 (Version 1)
Quarter: 2025Q2

REPORT INFORMATION
  Report Type: Spontaneous
  Country: GB (occurrence: GB)
  Receive Date: 20250630
  Receipt Date: 20250630
  Transmission Date: 20250716
  Serious: Yes (Other)
  Sender: DR REDDYS
  Company Number: None

PATIENT
  Age: 22 Year
  Sex: Female

DRUGS (1)
  1. ATOMOXETINE [Suspect]
     Active Substance: ATOMOXETINE
     Indication: Attention deficit hyperactivity disorder
     Dates: start: 20250622, end: 20250623

REACTIONS (6)
  - Rash [Recovered/Resolved]
  - Throat tightness [Recovering/Resolving]
  - Wheezing [Recovered/Resolved]
  - Hypertension [Recovering/Resolving]
  - Heart rate increased [Recovering/Resolving]
  - Dysphagia [Recovered/Resolved]

NARRATIVE: CASE EVENT DATE: 20250622
